FAERS Safety Report 9411905 (Version 1)
Quarter: 2013Q3

REPORT INFORMATION
  Report Type: Spontaneous
  Country: US (occurrence: None)
  Receive Date: 20130719
  Receipt Date: 20130719
  Transmission Date: 20140515
  Serious: Yes (Other)
  Sender: FDA-Public Use
  Company Number: None

PATIENT
  Age: 48 Year
  Sex: Male

DRUGS (1)
  1. TECFIDERA STARTER KIT [Suspect]
     Indication: MULTIPLE SCLEROSIS
     Dosage: 120 MG TWICE DAILY FOR 7 DAYS BY MOUTH
     Route: 048
     Dates: start: 20130717, end: 20130718

REACTIONS (4)
  - Nausea [None]
  - Headache [None]
  - Asthenia [None]
  - Dyspnoea [None]
